FAERS Safety Report 16790826 (Version 1)
Quarter: 2019Q3

REPORT INFORMATION
  Report Type: Spontaneous
  Country: CN (occurrence: CN)
  Receive Date: 20190910
  Receipt Date: 20190910
  Transmission Date: 20191005
  Serious: Yes (Other)
  Sender: FDA-Public Use
  Company Number: CN-ROCHE-2400476

PATIENT
  Age: 71 Year
  Sex: Male
  Weight: 56.2 kg

DRUGS (1)
  1. XELODA [Suspect]
     Active Substance: CAPECITABINE
     Indication: GASTRIC CANCER
     Route: 048
     Dates: start: 20190721, end: 20190803

REACTIONS (1)
  - Quadriparesis [Recovering/Resolving]

NARRATIVE: CASE EVENT DATE: 20190803
